FAERS Safety Report 7082703-6 (Version None)
Quarter: 2010Q4

REPORT INFORMATION
  Report Type: 
  Country: None (occurrence: None)
  Receive Date: 20101104
  Receipt Date: 20101022
  Transmission Date: 20110411
  Serious: Yes (Other)
  Sender: FDA-Public Use
  Company Number: US-ELI_LILLY_AND_COMPANY-US201001000021

PATIENT
  Sex: Female

DRUGS (7)
  1. FORTEO [Suspect]
     Indication: OSTEOPOROSIS
     Dosage: 20 UG, DAILY (1/D)
     Route: 065
     Dates: start: 20091001
  2. FORTEO [Suspect]
     Dosage: 20 UG, DAILY (1/D)
  3. FORTEO [Suspect]
     Dosage: 20 UG, DAILY (1/D)
     Dates: start: 20100801
  4. CALCIUM [Concomitant]
     Dosage: UNK, UNKNOWN
     Route: 065
  5. VITAMIN D [Concomitant]
     Dosage: UNK, UNKNOWN
     Route: 065
  6. ATURAL [Concomitant]
     Dosage: UNK, UNKNOWN
     Route: 065
  7. MOBIC [Concomitant]
     Dosage: UNK, UNKNOWN
     Route: 065

REACTIONS (12)
  - ARTHRALGIA [None]
  - BASAL CELL CARCINOMA [None]
  - BONE PAIN [None]
  - CONSTIPATION [None]
  - CREPITATIONS [None]
  - HAEMORRHAGE [None]
  - INJECTION SITE ERYTHEMA [None]
  - INJECTION SITE PAIN [None]
  - NAUSEA [None]
  - PALPITATIONS [None]
  - PRURITUS [None]
  - TREMOR [None]
